FAERS Safety Report 4637189-5 (Version None)
Quarter: 2005Q2

REPORT INFORMATION
  Report Type: 
  Country: None (occurrence: None)
  Receive Date: 20050416
  Receipt Date: 20050405
  Transmission Date: 20051028
  Serious: Yes (Hospitalization, Other)
  Sender: FDA-Public Use
  Company Number: US-JNJFOC-20050302421

PATIENT
  Age: 77 Year
  Sex: Male
  Weight: 106.5 kg

DRUGS (14)
  1. REMICADE [Suspect]
     Route: 042
  2. REMICADE [Suspect]
     Route: 042
  3. REMICADE [Suspect]
     Route: 042
  4. REMICADE [Suspect]
     Route: 042
  5. REMICADE [Suspect]
     Route: 042
  6. REMICADE [Suspect]
     Route: 042
  7. REMICADE [Suspect]
     Route: 042
  8. REMICADE [Suspect]
     Indication: CROHN'S DISEASE
     Route: 042
  9. DIOVAN [Concomitant]
  10. POTASSIUM CHLORIDE [Concomitant]
  11. PROZAC [Concomitant]
  12. INDERAL [Concomitant]
  13. IMURAN [Concomitant]
     Dosage: 50-150MG/DAY
  14. ASPIRIN [Concomitant]

REACTIONS (1)
  - BLADDER CANCER [None]
